FAERS Safety Report 8688928 (Version 2)
Quarter: 2013Q1

REPORT INFORMATION
  Report Type: Spontaneous
  Country: US (occurrence: US)
  Receive Date: 20120727
  Receipt Date: 20130327
  Transmission Date: 20140127
  Serious: No
  Sender: FDA-Public Use
  Company Number: US-ASTRAZENECA-2011SE71187

PATIENT
  Age: 56 Year
  Sex: Female

DRUGS (2)
  1. SEROQUEL XR [Suspect]
     Route: 048
  2. SEROQUEL XR [Suspect]
     Route: 048

REACTIONS (6)
  - Feeling abnormal [Unknown]
  - Nervousness [Unknown]
  - Mental disorder [Unknown]
  - Agitation [Unknown]
  - Drug dose omission [Unknown]
  - Drug ineffective [Unknown]
